FAERS Safety Report 12214425 (Version 1)
Quarter: 2016Q1

REPORT INFORMATION
  Report Type: Spontaneous
  Country: US (occurrence: None)
  Receive Date: 20160325
  Receipt Date: 20160325
  Transmission Date: 20160526
  Serious: Yes (Hospitalization)
  Sender: FDA-Public Use
  Company Number: None

PATIENT
  Age: 64 Year
  Sex: Female
  Weight: 78.2 kg

DRUGS (1)
  1. TRABECTEDIN [Suspect]
     Active Substance: TRABECTEDIN
     Indication: LEIOMYOSARCOMA
     Route: 041
     Dates: start: 20160211, end: 20160308

REACTIONS (4)
  - Hyperuricaemia [None]
  - Acute kidney injury [None]
  - Rhabdomyolysis [None]
  - Platelet count decreased [None]

NARRATIVE: CASE EVENT DATE: 20160321
